FAERS Safety Report 16006412 (Version 5)
Quarter: 2019Q3

REPORT INFORMATION
  Report Type: Spontaneous
  Country: US (occurrence: US)
  Receive Date: 20190225
  Receipt Date: 20190703
  Transmission Date: 20191004
  Serious: No
  Sender: FDA-Public Use
  Company Number: US-PFIZER INC-2019070670

PATIENT
  Age: 50 Year
  Sex: Female
  Weight: 145 kg

DRUGS (17)
  1. ASPIRIN 81 [Concomitant]
     Active Substance: ASPIRIN
     Indication: CARDIAC DISORDER
     Dosage: 81 MG, 1X/DAY
  2. LYRICA [Suspect]
     Active Substance: PREGABALIN
     Dosage: UNK
  3. OMEPRAZOLE. [Concomitant]
     Active Substance: OMEPRAZOLE
     Indication: GASTROOESOPHAGEAL REFLUX DISEASE
     Dosage: 20 MG, 2X/DAY
  4. LYRICA [Suspect]
     Active Substance: PREGABALIN
     Dosage: UNK
  5. SIMVASTATIN. [Concomitant]
     Active Substance: SIMVASTATIN
     Indication: BLOOD CHOLESTEROL INCREASED
     Dosage: 40 MG, 1X/DAY [ONE AT BED TIME]
  6. HYDROXYZINE HCL [Concomitant]
     Active Substance: HYDROXYZINE HYDROCHLORIDE
     Indication: ANXIETY
     Dosage: 25 MG, 3X/DAY (EVERY 8 HOURS)
  7. OXYCODONE/APAP [OXYCODONE;PARACETAMOL] [Concomitant]
     Indication: LIMB INJURY
  8. FLUTICASONE. [Concomitant]
     Active Substance: FLUTICASONE
     Indication: SINUS DISORDER
     Dosage: 100 UG, 1X/DAY[NASAL SPRAY, ONE THRUST EACH SIDE ONCE A DAY]
     Route: 045
  9. LYRICA [Suspect]
     Active Substance: PREGABALIN
     Indication: NERVE INJURY
     Dosage: 200 MG, 3X/DAY
     Route: 048
  10. LYRICA [Suspect]
     Active Substance: PREGABALIN
     Indication: RADICULOPATHY
     Dosage: UNK
  11. OXYCODONE/APAP [OXYCODONE;PARACETAMOL] [Concomitant]
     Indication: BACK INJURY
     Dosage: UNK, 4X/DAY [OXYCODONE:10 MG/PARACETAMOL: 325 MG] [EVERY 6 HOURS FOUR TIMES A DAY]
  12. LEVOTHROID [Concomitant]
     Active Substance: LEVOTHYROXINE SODIUM
     Indication: THYROID DISORDER
     Dosage: 0.025 MG, 1X/DAY
     Route: 048
  13. TEGRETOL [Concomitant]
     Active Substance: CARBAMAZEPINE
     Indication: NEUROPATHY PERIPHERAL
     Dosage: 200 MG, 2X/DAY
  14. TEGRETOL [Concomitant]
     Active Substance: CARBAMAZEPINE
     Indication: NERVE INJURY
  15. ROBAXIN [Concomitant]
     Active Substance: METHOCARBAMOL
     Indication: MUSCLE RELAXANT THERAPY
     Dosage: 750 MG, 2X/DAY
  16. VITAMIN D [COLECALCIFEROL] [Concomitant]
     Active Substance: CHOLECALCIFEROL
     Indication: BLOOD CHOLESTEROL INCREASED
     Dosage: UNK, WEEKLY [ 50 MU ONCE A WEEK]
  17. NAPROXEN. [Concomitant]
     Active Substance: NAPROXEN
     Indication: MUSCLE RELAXANT THERAPY
     Dosage: 500 MG, 2X/DAY

REACTIONS (6)
  - Nausea [Unknown]
  - Diarrhoea [Unknown]
  - Abdominal pain upper [Unknown]
  - Malaise [Unknown]
  - Muscle spasms [Unknown]
  - Gastric disorder [Unknown]
